FAERS Safety Report 14552883 (Version 1)
Quarter: 2018Q1

REPORT INFORMATION
  Report Type: Spontaneous
  Country: AR (occurrence: AR)
  Receive Date: 20180220
  Receipt Date: 20180220
  Transmission Date: 20180509
  Serious: Yes (Death, Hospitalization)
  Sender: FDA-Public Use
  Company Number: AR-ACTELION-A-CH2018-167538

PATIENT
  Age: 22 Month
  Sex: Female

DRUGS (1)
  1. ZAVESCA [Suspect]
     Active Substance: MIGLUSTAT
     Indication: NEURODEGENERATIVE DISORDER
     Dosage: UNK
     Route: 048
     Dates: start: 201710

REACTIONS (2)
  - Pneumonia [Unknown]
  - General physical health deterioration [Fatal]
